FAERS Safety Report 7541466 (Version 3)
Quarter: 2013Q1

REPORT INFORMATION
  Report Type: Spontaneous
  Country: US (occurrence: US)
  Receive Date: 20100815
  Receipt Date: 20130311
  Transmission Date: 20140127
  Serious: Yes (Death, Other)
  Sender: FDA-Public Use
  Company Number: US-BAYER-201030072NA

PATIENT
  Age: 81 Year
  Sex: Female
  Weight: 75 kg

DRUGS (16)
  1. TRASYLOL [Suspect]
     Indication: PRODUCT USED FOR UNKNOWN INDICATION
     Dosage: 2 MILLION UNITS [200ML]
     Route: 042
     Dates: start: 20030602, end: 20030602
  2. ACETYLSALICYLIC ACID [Concomitant]
     Dosage: 0.5 DF, UNK
  3. LASIX [Concomitant]
     Dosage: 20 MG, QD
  4. DOPAMINE [Concomitant]
     Dosage: UNK
     Dates: start: 20030602
  5. ESMOLOL [Concomitant]
     Dosage: UNK
     Dates: start: 20030602, end: 20030602
  6. FENTANYL [Concomitant]
     Dosage: UNK
     Dates: start: 20030602, end: 20030602
  7. HEPARIN [Concomitant]
     Dosage: UNK
     Dates: start: 20030602, end: 20030602
  8. KEFUROX [Concomitant]
     Dosage: 1.5 G, UNK
     Dates: start: 20030602, end: 20030602
  9. LORAZEPAM [Concomitant]
     Dosage: UNK
     Dates: start: 20030602, end: 20030602
  10. MIDAZOLAM [Concomitant]
     Dosage: UNK
     Dates: start: 20030602
  11. PROPOFOL [Concomitant]
     Dosage: UNK
     Dates: start: 20030602, end: 20030602
  12. PROTAMINE [Concomitant]
     Dosage: UNK
     Dates: start: 20030602, end: 20030602
  13. SEVOFLURANE [Concomitant]
     Dosage: UNK
     Dates: start: 20030602, end: 20030602
  14. VANCOMYCIN [Concomitant]
     Dosage: 1 G, UNK
     Dates: start: 20030602, end: 20030602
  15. VECURONIUM [Concomitant]
     Dosage: UNK
     Dates: start: 20030602, end: 20030602
  16. ATENOLOL [Concomitant]
     Dosage: 25 MG, QD

REACTIONS (15)
  - Death [Fatal]
  - Multi-organ failure [Unknown]
  - Renal failure acute [None]
  - Renal injury [Unknown]
  - Renal failure [Unknown]
  - Anxiety [Unknown]
  - Fear [Unknown]
  - Pain [Unknown]
  - Depression [Unknown]
  - Injury [Unknown]
  - Anxiety [Unknown]
  - Disability [Unknown]
  - Emotional distress [Unknown]
  - Anhedonia [Unknown]
  - Off label use [None]
